FAERS Safety Report 17717233 (Version 1)
Quarter: 2020Q2

REPORT INFORMATION
  Report Type: Spontaneous
  Country: US (occurrence: US)
  Receive Date: 20200428
  Receipt Date: 20200428
  Transmission Date: 20200714
  Serious: Yes (Other)
  Sender: FDA-Public Use
  Company Number: US-LUPIN PHARMACEUTICALS INC.-2020-01079

PATIENT
  Age: 60 Year
  Sex: Female

DRUGS (6)
  1. LEVETIRACETAM. [Concomitant]
     Active Substance: LEVETIRACETAM
     Indication: TEMPORAL LOBE EPILEPSY
     Dosage: 1500 MILLIGRAM, QD (EXTENDED RELEASE)
     Route: 065
  2. LACOSAMIDE. [Suspect]
     Active Substance: LACOSAMIDE
     Indication: TEMPORAL LOBE EPILEPSY
     Dosage: 100 MILLIGRAM, BID
     Route: 065
  3. LEVETIRACETAM. [Concomitant]
     Active Substance: LEVETIRACETAM
     Indication: GENERALISED TONIC-CLONIC SEIZURE
  4. LACOSAMIDE. [Suspect]
     Active Substance: LACOSAMIDE
     Indication: GENERALISED TONIC-CLONIC SEIZURE
  5. PHENYTOIN SODIUM. [Suspect]
     Active Substance: PHENYTOIN SODIUM
     Indication: TEMPORAL LOBE EPILEPSY
     Dosage: 500 MILLIGRAM, QD
     Route: 065
  6. PHENYTOIN SODIUM. [Suspect]
     Active Substance: PHENYTOIN SODIUM
     Indication: GENERALISED TONIC-CLONIC SEIZURE

REACTIONS (1)
  - Bradycardia [Recovered/Resolved]
